FAERS Safety Report 4687741-6 (Version None)
Quarter: 2005Q2

REPORT INFORMATION
  Report Type: 
  Country: None (occurrence: None)
  Receive Date: 20050610
  Receipt Date: 20031002
  Transmission Date: 20051028
  Serious: Yes (Hospitalization)
  Sender: FDA-Public Use
  Company Number: GB-SANOFI-SYNTHELABO-D01200301347

PATIENT
  Sex: Male

DRUGS (9)
  1. SR57746 OR PLACEBO [Suspect]
     Indication: COLORECTAL CANCER METASTATIC
     Route: 048
     Dates: start: 20030915
  2. OXALIPLATIN [Suspect]
     Route: 042
     Dates: start: 20030915, end: 20030915
  3. FLUOROURACIL [Suspect]
     Dosage: 400 MG/M2 AS IV BOLUS THEN 600 MG/M2 AS 22 HOURS CONTINUOUS INFUSION D1-D2 Q2W
     Route: 042
     Dates: start: 20030915, end: 20030916
  4. LEUCOVORIN CALCIUM [Suspect]
     Dosage: 200 MG/M2 AS 2 HOURS INFUSION ON D1-D2 Q2W
     Route: 042
     Dates: start: 20030915, end: 20030916
  5. WARFARIN SODIUM [Concomitant]
     Dosage: UNK
     Route: 065
     Dates: start: 20030910
  6. CLEXANE [Concomitant]
     Dosage: UNK
     Route: 065
     Dates: start: 20030910, end: 20030911
  7. NUROFEN [Concomitant]
  8. VENTOLIN [Concomitant]
  9. ZOPICLONE [Concomitant]
     Dosage: UNK
     Route: 065
     Dates: start: 20031003

REACTIONS (6)
  - ACTIVATED PARTIAL THROMBOPLASTIN TIME PROLONGED [None]
  - ANAEMIA [None]
  - FIBRIN D DIMER INCREASED [None]
  - NEUROTOXICITY [None]
  - NEUTROPENIC SEPSIS [None]
  - PROTHROMBIN TIME PROLONGED [None]
